FAERS Safety Report 18077724 (Version 3)
Quarter: 2020Q4

REPORT INFORMATION
  Report Type: Spontaneous
  Country: US (occurrence: US)
  Receive Date: 20200728
  Receipt Date: 20201215
  Transmission Date: 20210113
  Serious: Yes (Other)
  Sender: FDA-Public Use
  Company Number: US-GILEAD-2020-0480636

PATIENT
  Sex: Male

DRUGS (2)
  1. VIREAD [Suspect]
     Active Substance: TENOFOVIR DISOPROXIL FUMARATE
     Indication: HIV INFECTION
     Dosage: UNK
     Route: 048
     Dates: start: 200709, end: 201410
  2. TRUVADA [Suspect]
     Active Substance: EMTRICITABINE\TENOFOVIR DISOPROXIL FUMARATE
     Indication: HIV INFECTION
     Dosage: UNK
     Route: 048
     Dates: start: 20070923, end: 20141023

REACTIONS (7)
  - Skeletal injury [Unknown]
  - Bone density decreased [Not Recovered/Not Resolved]
  - Tooth loss [Unknown]
  - Multiple fractures [Unknown]
  - Renal injury [Unknown]
  - Osteonecrosis [Unknown]
  - Bone loss [Unknown]
